FAERS Safety Report 14237938 (Version 2)
Quarter: 2018Q1

REPORT INFORMATION
  Report Type: Spontaneous
  Country: CN (occurrence: CN)
  Receive Date: 20171130
  Receipt Date: 20180105
  Transmission Date: 20180508
  Serious: Yes (Other)
  Sender: FDA-Public Use
  Company Number: CN-SUN PHARMACEUTICAL INDUSTRIES LTD-2017R1-155605

PATIENT
  Age: 4 Year
  Sex: Male

DRUGS (1)
  1. PREDNISONE. [Suspect]
     Active Substance: PREDNISONE
     Indication: ALVEOLITIS ALLERGIC
     Dosage: 1 MG/KG, DAILY

REACTIONS (2)
  - Lung infection [Recovered/Resolved]
  - Aspergillus infection [Recovered/Resolved]
